FAERS Safety Report 15239246 (Version 3)
Quarter: 2018Q3

REPORT INFORMATION
  Report Type: Spontaneous
  Country: RO (occurrence: RO)
  Receive Date: 20180803
  Receipt Date: 20180823
  Transmission Date: 20181010
  Serious: No
  Sender: FDA-Public Use
  Company Number: RO-009507513-1807ROM012068

PATIENT
  Age: 38 Year
  Sex: Female
  Weight: 30 kg

DRUGS (10)
  1. OLANZAPINE. [Concomitant]
     Active Substance: OLANZAPINE
     Dosage: 10 MG, UNK
     Dates: start: 201703, end: 20170405
  2. THIAMINE [Concomitant]
     Active Substance: THIAMINE
     Dosage: 400 MG, UNK, ADMINISTERED IN PERFUSION
     Route: 042
     Dates: end: 20170410
  3. PYRIDOXINE [Concomitant]
     Active Substance: PYRIDOXINE
     Dosage: 100 MG, UNK, ADMINISTERED IN PERFUSION
     Route: 042
     Dates: end: 20170410
  4. OLANZAPINE. [Concomitant]
     Active Substance: OLANZAPINE
     Indication: DELUSIONAL DISORDER, SOMATIC TYPE
     Dosage: 5 MG/DAY
     Dates: start: 201703, end: 201703
  5. SODIUM CHLORIDE. [Concomitant]
     Active Substance: SODIUM CHLORIDE
     Dosage: 500 ML, UNK
  6. MIRTAZAPINE. [Suspect]
     Active Substance: MIRTAZAPINE
     Dosage: 30 MG/DAY
     Route: 048
     Dates: start: 20170405, end: 20171019
  7. MIRTAZAPINE. [Suspect]
     Active Substance: MIRTAZAPINE
     Indication: DELUSIONAL DISORDER, SOMATIC TYPE
     Dosage: 45 MG/DAY, AS RECOMMENDED BY PSYCHIATRIST
     Route: 048
     Dates: start: 201703
  8. MIRTAZAPINE. [Suspect]
     Active Substance: MIRTAZAPINE
     Dosage: 15 MG, UNK
     Route: 048
     Dates: start: 20170321
  9. OLANZAPINE. [Concomitant]
     Active Substance: OLANZAPINE
     Dosage: 15 MG/DAY
     Dates: start: 20170405
  10. DEXTROSE. [Concomitant]
     Active Substance: DEXTROSE
     Dosage: 500 ML, UNK
     Route: 042

REACTIONS (1)
  - Product use in unapproved indication [Unknown]

NARRATIVE: CASE EVENT DATE: 201703
